FAERS Safety Report 13780423 (Version 2)
Quarter: 2017Q3

REPORT INFORMATION
  Report Type: Spontaneous
  Country: US (occurrence: US)
  Receive Date: 20170724
  Receipt Date: 20170829
  Transmission Date: 20171127
  Serious: No
  Sender: FDA-Public Use
  Company Number: US-009507513-1707USA008719

PATIENT
  Sex: Male
  Weight: 98.41 kg

DRUGS (4)
  1. CITALOPRAM [Concomitant]
     Active Substance: CITALOPRAM HYDROBROMIDE
     Dosage: 20 MG, QD
     Route: 048
     Dates: start: 20141104
  2. PRINIVIL [Suspect]
     Active Substance: LISINOPRIL
     Indication: HYPERTENSION
     Dosage: UNK UNK, QD
     Route: 048
     Dates: start: 201512, end: 20170623
  3. SIMVASTATIN TABLETS, USP [Concomitant]
     Active Substance: SIMVASTATIN
     Dosage: UNK
     Route: 048
     Dates: start: 20151201, end: 20170624
  4. LYRICA [Concomitant]
     Active Substance: PREGABALIN
     Dosage: 600 MG, QD
     Route: 048
     Dates: start: 20150505

REACTIONS (2)
  - Cough [Recovered/Resolved]
  - Drug hypersensitivity [Unknown]
